FAERS Safety Report 6278083-6 (Version None)
Quarter: 2009Q3

REPORT INFORMATION
  Report Type: 
  Country: None (occurrence: None)
  Receive Date: 20090722
  Receipt Date: 20080220
  Transmission Date: 20100115
  Serious: Yes (Other)
  Sender: FDA-Public Use
  Company Number: US-ASTRAZENECA-2007UW27343

PATIENT
  Age: 12733 Day
  Sex: Male

DRUGS (37)
  1. SEROQUEL [Suspect]
     Indication: TINNITUS
     Dosage: 100 TO 900 MG
     Route: 048
     Dates: start: 19991206
  2. SEROQUEL [Suspect]
     Indication: SCHIZOPHRENIA
     Dosage: 100 TO 900 MG
     Route: 048
     Dates: start: 19991206
  3. SEROQUEL [Suspect]
     Indication: PARANOIA
     Dosage: 100 TO 900 MG
     Route: 048
     Dates: start: 19991206
  4. SEROQUEL [Suspect]
     Dosage: 100MG, 200MG, 300MG, 900MG
     Route: 048
     Dates: start: 20000101
  5. SEROQUEL [Suspect]
     Dosage: 100MG, 200MG, 300MG, 900MG
     Route: 048
     Dates: start: 20000101
  6. SEROQUEL [Suspect]
     Dosage: 100MG, 200MG, 300MG, 900MG
     Route: 048
     Dates: start: 20000101
  7. ABILIFY [Concomitant]
     Dosage: 15 TO 30 MG
     Dates: start: 20040126
  8. GEODON [Concomitant]
     Dates: start: 20020101
  9. HALOPERIDOL [Concomitant]
     Dates: start: 20070108
  10. RISPERDAL [Concomitant]
     Indication: DEPRESSION
     Dates: start: 20020101
  11. RISPERDAL [Concomitant]
     Dates: start: 20030225
  12. THORAZINE [Concomitant]
  13. PROZAC [Concomitant]
  14. VALPROIC ACID [Concomitant]
     Dates: start: 20070205
  15. CELEXA [Concomitant]
     Dosage: 40 TO 60 MG
     Route: 048
     Dates: start: 20060801
  16. CELEXA [Concomitant]
     Dates: start: 20070101
  17. KLONOPIN [Concomitant]
     Dosage: 2 TO 4 MG
     Dates: start: 20060801
  18. KLONOPIN [Concomitant]
     Dates: start: 20070101
  19. HBM [Concomitant]
  20. WELLBUTRIN SR [Concomitant]
     Dates: start: 20020101
  21. WELLBUTRIN SR [Concomitant]
     Dates: start: 20040430
  22. LEXAPRO [Concomitant]
     Dates: start: 20020101
  23. LEXAPRO [Concomitant]
     Dosage: 10 TO 20 MG
     Dates: start: 20040126
  24. TRAZODONE [Concomitant]
     Dates: start: 20000101
  25. TRAZODONE [Concomitant]
     Dates: start: 20070420
  26. DEPAKOTE [Concomitant]
     Indication: DEPRESSION
     Dates: start: 20060101
  27. DEPAKOTE [Concomitant]
     Dosage: 500 TO 1500 MG
     Dates: start: 19991203
  28. PAXIL [Concomitant]
     Dates: start: 20000101
  29. TEMAZEPAM [Concomitant]
     Dates: start: 20040126
  30. XANAX [Concomitant]
     Indication: DEPRESSION
     Dosage: 1 TO 3 MG
     Dates: start: 20030326
  31. HYDROXYZINE HCL [Concomitant]
     Dates: start: 20070112
  32. LOVASTATIN [Concomitant]
     Dates: start: 20070205
  33. BENZTROPINE MESYLATE [Concomitant]
     Dates: start: 20070205
  34. LYRICA [Concomitant]
     Dates: start: 20070503
  35. EFFEXOR XR [Concomitant]
     Indication: DEPRESSION
     Dates: start: 20000614
  36. VICODIN [Concomitant]
     Indication: PAIN
     Dosage: 5/500, 7.5/500 MG
     Dates: start: 20070109
  37. OXYCODONE HCL AND ACETAMINOPHEN [Concomitant]
     Dosage: 7.5/500MG
     Dates: start: 20070425

REACTIONS (10)
  - BACK PAIN [None]
  - BLOOD TRIGLYCERIDES INCREASED [None]
  - BORDERLINE PERSONALITY DISORDER [None]
  - CARPAL TUNNEL SYNDROME [None]
  - DIABETES MELLITUS [None]
  - GALLBLADDER OPERATION [None]
  - OBESITY [None]
  - SLEEP APNOEA SYNDROME [None]
  - TYPE 2 DIABETES MELLITUS [None]
  - WEIGHT INCREASED [None]
